FAERS Safety Report 5986290-2 (Version None)
Quarter: 2008Q4

REPORT INFORMATION
  Report Type: 
  Country: None (occurrence: None)
  Receive Date: 20081209
  Receipt Date: 20081202
  Transmission Date: 20090506
  Serious: Yes (Other)
  Sender: FDA-Public Use
  Company Number: US-ROCHE-485161

PATIENT
  Sex: Female

DRUGS (3)
  1. BONIVA [Suspect]
     Indication: OSTEOPENIA
     Dosage: FORM REPORTED AS: PILL
     Route: 065
     Dates: start: 20040101, end: 20060901
  2. CELEBREX [Suspect]
     Route: 065
  3. ZANTAC [Concomitant]
     Route: 065

REACTIONS (2)
  - ABDOMINAL DISCOMFORT [None]
  - CARCINOID TUMOUR [None]
